FAERS Safety Report 9851440 (Version 1)
Quarter: 2014Q1

REPORT INFORMATION
  Report Type: Spontaneous
  Country: US (occurrence: US)
  Receive Date: 20140129
  Receipt Date: 20140129
  Transmission Date: 20141002
  Serious: Yes (Other)
  Sender: FDA-Public Use
  Company Number: US-BIOGENIDEC-2014BI008350

PATIENT
  Sex: Female

DRUGS (1)
  1. AVONEX [Suspect]
     Indication: MULTIPLE SCLEROSIS
     Route: 030
     Dates: start: 20131216

REACTIONS (23)
  - Intestinal obstruction [Unknown]
  - Epilepsy [Unknown]
  - Stress [Unknown]
  - Tremor [Unknown]
  - Memory impairment [Unknown]
  - Bipolar disorder [Unknown]
  - Migraine [Unknown]
  - Overweight [Unknown]
  - Spinal rod insertion [Unknown]
  - Speech disorder [Unknown]
  - Musculoskeletal disorder [Unknown]
  - Cognitive disorder [Unknown]
  - Injection site haemorrhage [Unknown]
  - Back pain [Unknown]
  - Frustration [Unknown]
  - Emotional disorder [Unknown]
  - Pain [Unknown]
  - Vomiting [Unknown]
  - Diarrhoea [Unknown]
  - Depressed mood [Unknown]
  - Multiple sclerosis relapse [Unknown]
  - Headache [Unknown]
  - Fatigue [Unknown]
